FAERS Safety Report 20739999 (Version 1)
Quarter: 2022Q2

REPORT INFORMATION
  Report Type: Spontaneous
  Country: US (occurrence: US)
  Receive Date: 20220422
  Receipt Date: 20220422
  Transmission Date: 20220721
  Serious: No
  Sender: FDA-Public Use
  Company Number: US-PFIZER INC-202200470764

PATIENT
  Age: 39 Year
  Sex: Female

DRUGS (2)
  1. TOLTERODINE TARTRATE [Suspect]
     Active Substance: TOLTERODINE TARTRATE
     Dosage: UNK
  2. OXYBUTYNIN [Suspect]
     Active Substance: OXYBUTYNIN
     Dosage: UNK

REACTIONS (5)
  - Drug ineffective [Unknown]
  - Hypertonic bladder [Unknown]
  - Vulvovaginal pruritus [Unknown]
  - Mixed incontinence [Unknown]
  - Nocturia [Unknown]
